FAERS Safety Report 7745776-0 (Version None)
Quarter: 2011Q3

REPORT INFORMATION
  Report Type: 
  Country: None (occurrence: None)
  Receive Date: 20110913
  Receipt Date: 20110906
  Transmission Date: 20111222
  Serious: Yes (Hospitalization, Other)
  Sender: FDA-Public Use
  Company Number: US-BAYER-201014820NA

PATIENT
  Age: 20 Year
  Sex: Female
  Weight: 63 kg

DRUGS (2)
  1. YASMIN [Suspect]
     Indication: DYSMENORRHOEA
     Route: 048
     Dates: start: 20030101, end: 20050101
  2. YASMIN [Suspect]
     Indication: ORAL CONTRACEPTION

REACTIONS (5)
  - HYPERTENSION [None]
  - WEIGHT INCREASED [None]
  - CYST [None]
  - PELVIC ADHESIONS [None]
  - ENDOMETRIOSIS [None]
